FAERS Safety Report 8318720 (Version 2)
Quarter: 2013Q1

REPORT INFORMATION
  Report Type: Spontaneous
  Country: US (occurrence: US)
  Receive Date: 20120103
  Receipt Date: 20130221
  Transmission Date: 20140127
  Serious: Yes (Life-Threatening, Congenital Anomaly, Other)
  Sender: FDA-Public Use
  Company Number: US-PFIZER INC-2011288531

PATIENT
  Sex: Female

DRUGS (6)
  1. ZOLOFT [Suspect]
     Dosage: UNK
     Route: 064
     Dates: start: 2009
  2. HYDROXYZINE PAMOATE [Concomitant]
     Dosage: UNK
     Route: 064
  3. ALPRAZOLAM [Concomitant]
     Dosage: UNK
     Route: 064
  4. OXYCODONE [Concomitant]
     Dosage: UNK
     Route: 064
  5. NECON [Concomitant]
     Dosage: UNK
     Route: 064
  6. HYDROCODONE [Concomitant]
     Dosage: UNK
     Route: 064

REACTIONS (3)
  - Maternal exposure timing unspecified [Unknown]
  - Talipes [Unknown]
  - Congenital anomaly [Unknown]
